FAERS Safety Report 5912782-8 (Version None)
Quarter: 2008Q4

REPORT INFORMATION
  Report Type: 
  Country: None (occurrence: None)
  Receive Date: 20081008
  Receipt Date: 20080819
  Transmission Date: 20090506
  Serious: No
  Sender: FDA-Public Use
  Company Number: US-ABBOTT-08P-163-0471685-00

PATIENT
  Sex: Male

DRUGS (3)
  1. DEPAKOTE [Suspect]
     Indication: CONVULSION
  2. DEPAKOTE ER [Suspect]
     Indication: CONVULSION
     Dosage: LOWER DOSE
  3. DEPAKOTE ER [Suspect]

REACTIONS (2)
  - DIARRHOEA [None]
  - MEDICATION RESIDUE [None]
